FAERS Safety Report 19599227 (Version 1)
Quarter: 2021Q3

REPORT INFORMATION
  Report Type: Spontaneous
  Country: US (occurrence: US)
  Receive Date: 20210723
  Receipt Date: 20210723
  Transmission Date: 20211014
  Serious: Yes (Hospitalization)
  Sender: FDA-Public Use
  Company Number: None

PATIENT
  Age: 68 Year
  Sex: Male
  Weight: 85 kg

DRUGS (2)
  1. RIFAMPIN. [Suspect]
     Active Substance: RIFAMPIN
     Indication: MYCOBACTERIUM AVIUM COMPLEX INFECTION
     Route: 048
  2. ISAVUCONAZONIUM [Suspect]
     Active Substance: ISAVUCONAZONIUM
     Indication: PNEUMONIA FUNGAL
     Route: 048

REACTIONS (6)
  - Drug ineffective [None]
  - Productive cough [None]
  - Disease recurrence [None]
  - Lethargy [None]
  - Haemoptysis [None]
  - Dyspnoea [None]

NARRATIVE: CASE EVENT DATE: 20200903
